FAERS Safety Report 12456844 (Version 1)
Quarter: 2016Q2

REPORT INFORMATION
  Report Type: Spontaneous
  Country: US (occurrence: US)
  Receive Date: 20160610
  Receipt Date: 20160610
  Transmission Date: 20160815
  Serious: Yes (Other)
  Sender: FDA-Public Use
  Company Number: US-009507513-1606USA001623

PATIENT
  Sex: Female
  Weight: 68.4 kg

DRUGS (2)
  1. ATEROL (SULODEXIDE) [Concomitant]
     Indication: BLOOD PRESSURE ABNORMAL
  2. ZOCOR [Suspect]
     Active Substance: SIMVASTATIN
     Indication: BLOOD CHOLESTEROL INCREASED
     Dosage: 2 PILLS
     Route: 048
     Dates: start: 2009

REACTIONS (5)
  - Dysstasia [Unknown]
  - Paralysis [Recovered/Resolved]
  - Tendonitis [Unknown]
  - Abasia [Unknown]
  - Pain in extremity [Unknown]

NARRATIVE: CASE EVENT DATE: 2016
